FAERS Safety Report 19738389 (Version 1)
Quarter: 2021Q3

REPORT INFORMATION
  Report Type: Report from Study
  Country: DE (occurrence: DE)
  Receive Date: 20210823
  Receipt Date: 20210823
  Transmission Date: 20211014
  Serious: Yes (Congenital Anomaly)
  Sender: FDA-Public Use
  Company Number: DE-BIOGEN-2021BI01040281

PATIENT
  Age: 0 Day
  Sex: Female

DRUGS (8)
  1. AVONEX PEN [Suspect]
     Active Substance: INTERFERON BETA-1A
     Indication: MATERNAL EXPOSURE TIMING UNSPECIFIED
     Route: 064
     Dates: start: 20170329, end: 20170405
  2. TYSABRI [Suspect]
     Active Substance: NATALIZUMAB
     Indication: MATERNAL EXPOSURE TIMING UNSPECIFIED
     Route: 064
     Dates: start: 20140411, end: 20170101
  3. AVONEX PEN [Suspect]
     Active Substance: INTERFERON BETA-1A
  4. FOLIC ACID. [Concomitant]
     Active Substance: FOLIC ACID
     Indication: MATERNAL EXPOSURE TIMING UNSPECIFIED
     Route: 064
     Dates: start: 2017, end: 201712
  5. FLORADIX [Concomitant]
     Active Substance: IRON
     Indication: MATERNAL EXPOSURE TIMING UNSPECIFIED
     Route: 064
  6. VITAMIN K [Concomitant]
     Active Substance: PHYTONADIONE
     Indication: PROPHYLAXIS
     Route: 048
  7. AVONEX PEN [Suspect]
     Active Substance: INTERFERON BETA-1A
  8. AVONEX PEN [Suspect]
     Active Substance: INTERFERON BETA-1A

REACTIONS (9)
  - Foetal exposure during pregnancy [Unknown]
  - Tonsillar hypertrophy [Recovered/Resolved]
  - Congenital musculoskeletal anomaly [Recovered/Resolved]
  - Congenital neurological disorder [Recovered/Resolved]
  - Jaundice neonatal [Recovered/Resolved]
  - Nasopharyngitis [Recovered/Resolved]
  - Hernia congenital [Recovered/Resolved]
  - Infantile vomiting [Recovered/Resolved]
  - Dacryostenosis congenital [Recovered/Resolved]

NARRATIVE: CASE EVENT DATE: 20171227
